FAERS Safety Report 21404427 (Version 3)
Quarter: 2022Q4

REPORT INFORMATION
  Report Type: Report from Study
  Country: ES (occurrence: ES)
  Receive Date: 20221003
  Receipt Date: 20221028
  Transmission Date: 20230112
  Serious: Yes (Hospitalization, Other)
  Sender: FDA-Public Use
  Company Number: ES-G1 THERAPEUTICS-2022G1ES0000221

PATIENT

DRUGS (8)
  1. TRILACICLIB [Suspect]
     Active Substance: TRILACICLIB
     Indication: Myelosuppression
     Dosage: 329 MG :1000 MG/M2 ON DAY 1 AND 8 OF EACH CYCLE
     Route: 041
     Dates: start: 20220804, end: 20220811
  2. GEMCITABINE [Suspect]
     Active Substance: GEMCITABINE
     Indication: Ureteric cancer metastatic
     Dosage: 1370 MG :1000 MG/M2 ON DAY 1 AND 8 OF EACH CYCLE
     Route: 041
     Dates: start: 20220804, end: 20220811
  3. CARBOPLATIN [Suspect]
     Active Substance: CARBOPLATIN
     Indication: Ureteric cancer metastatic
     Dosage: 225 MG; 4.5 AUC ADMINISTERED ON DAY 1 OF EACH CYCLE
     Route: 041
     Dates: start: 20220804, end: 20220804
  4. CISPLATIN [Suspect]
     Active Substance: CISPLATIN
     Indication: Ureteric cancer metastatic
  5. AVELUMAB [Suspect]
     Active Substance: AVELUMAB
     Indication: Ureteric cancer metastatic
  6. CALCIFEDIOL [Concomitant]
     Active Substance: CALCIFEDIOL
     Indication: Osteoporosis
     Dosage: 0.226 MG QM
     Route: 048
     Dates: start: 2018
  7. METAMIZOLE MAGNESIUM [Concomitant]
     Active Substance: METAMIZOLE MAGNESIUM
     Indication: Pain
     Dosage: 575 MG, QD
     Route: 048
     Dates: start: 202206
  8. OMEPRAZOLE [Concomitant]
     Active Substance: OMEPRAZOLE
     Indication: Prophylaxis
     Dosage: 20 MG, QD
     Route: 048
     Dates: start: 202205

REACTIONS (1)
  - Cerebral thrombosis [Recovered/Resolved]

NARRATIVE: CASE EVENT DATE: 20220922
